FAERS Safety Report 19053506 (Version 2)
Quarter: 2021Q2

REPORT INFORMATION
  Report Type: Spontaneous
  Country: US (occurrence: US)
  Receive Date: 20210324
  Receipt Date: 20210424
  Transmission Date: 20210717
  Serious: Yes (Disabling, Other)
  Sender: FDA-Public Use
  Company Number: US-TEVA-2021-US-1892272

PATIENT
  Age: 38 Year
  Sex: Female

DRUGS (11)
  1. OXYCODONE IR [Suspect]
     Active Substance: OXYCODONE
     Route: 065
  2. TRAMADOL IR [Suspect]
     Active Substance: TRAMADOL
     Route: 065
  3. OXYCODONE AND ACETAMINOPHEN [Suspect]
     Active Substance: ACETAMINOPHEN\OXYCODONE HYDROCHLORIDE
     Route: 065
  4. HYDROCODONE AND ACETAMINOPHEN [Suspect]
     Active Substance: ACETAMINOPHEN\HYDROCODONE
     Route: 065
  5. TRAMADOL IR [Suspect]
     Active Substance: TRAMADOL
     Route: 065
     Dates: start: 2008, end: 2009
  6. MS CONTIN [Suspect]
     Active Substance: MORPHINE SULFATE
     Route: 065
  7. ACTIQ [Suspect]
     Active Substance: FENTANYL CITRATE
     Indication: PRODUCT USED FOR UNKNOWN INDICATION
     Route: 065
  8. MORPHINE [Suspect]
     Active Substance: MORPHINE
     Route: 065
  9. HYSINGLA ER [Suspect]
     Active Substance: HYDROCODONE BITARTRATE
     Route: 065
  10. FENTANYL. [Suspect]
     Active Substance: FENTANYL
     Route: 065
  11. OXYCODONE ER [Suspect]
     Active Substance: OXYCODONE
     Route: 065

REACTIONS (6)
  - Personal relationship issue [Unknown]
  - Attention deficit hyperactivity disorder [Unknown]
  - Learning disability [Recovered/Resolved]
  - Substance use disorder [Recovered/Resolved]
  - Drug dependence [Recovered/Resolved]
  - Economic problem [Unknown]

NARRATIVE: CASE EVENT DATE: 2008
